FAERS Safety Report 12182349 (Version 1)
Quarter: 2016Q1

REPORT INFORMATION
  Report Type: Spontaneous
  Country: BG (occurrence: BG)
  Receive Date: 20160316
  Receipt Date: 20160316
  Transmission Date: 20160526
  Serious: Yes (Life-Threatening, Hospitalization, Other)
  Sender: FDA-Public Use
  Company Number: BG-ALVOGEN-2016-ALVOGEN-022778

PATIENT
  Age: 37 Year
  Sex: Female

DRUGS (2)
  1. OLANZAPINE. [Suspect]
     Active Substance: OLANZAPINE
     Indication: SUICIDE ATTEMPT
     Dosage: 30 TABLETS (0.3 G OF OLANZAPINE)
     Route: 048
  2. DAPSONE. [Suspect]
     Active Substance: DAPSONE
     Indication: SUICIDE ATTEMPT
     Dosage: 4.5 G OF DAPSONE (45 TABLETS)
     Route: 048

REACTIONS (9)
  - Suicide attempt [Recovered/Resolved]
  - Irregular breathing [Recovered/Resolved]
  - Tachycardia [Recovered/Resolved]
  - Methaemoglobinaemia [Recovered/Resolved]
  - Cyanosis [Recovered/Resolved]
  - Hepatitis toxic [Recovered/Resolved with Sequelae]
  - Mydriasis [Recovered/Resolved]
  - Intentional overdose [Recovered/Resolved]
  - Coma [Recovered/Resolved]
